FAERS Safety Report 7550339-6 (Version None)
Quarter: 2011Q2

REPORT INFORMATION
  Report Type: 
  Country: None (occurrence: None)
  Receive Date: 20110615
  Receipt Date: 20100622
  Transmission Date: 20111010
  Serious: Yes (Other)
  Sender: FDA-Public Use
  Company Number: A0866568A

PATIENT
  Age: 63 Year
  Sex: Male
  Weight: 84.1 kg

DRUGS (4)
  1. LITHIUM [Concomitant]
     Indication: DEPRESSION
     Dosage: 300MG SEE DOSAGE TEXT
     Route: 048
  2. PARNATE [Suspect]
     Indication: DEPRESSION
     Dosage: 1TAB PER DAY
     Route: 048
  3. PRAVASTATIN [Concomitant]
     Dosage: 40MG SEE DOSAGE TEXT
     Route: 048
  4. LISINOPRIL [Concomitant]
     Indication: HYPERTENSION
     Dosage: 10MG SEE DOSAGE TEXT
     Route: 048

REACTIONS (3)
  - HYPERTENSIVE CRISIS [None]
  - BLOOD PRESSURE SYSTOLIC INCREASED [None]
  - HEADACHE [None]
